FAERS Safety Report 26208162 (Version 1)
Quarter: 2025Q4

REPORT INFORMATION
  Report Type: Spontaneous
  Country: US (occurrence: US)
  Receive Date: 20251229
  Receipt Date: 20251229
  Transmission Date: 20260118
  Serious: Yes (Hospitalization)
  Sender: MYLAN
  Company Number: US-MYLANLABS-2025M1109963

PATIENT
  Age: 78 Year
  Sex: Female

DRUGS (1)
  1. OCTREOTIDE [Suspect]
     Active Substance: OCTREOTIDE
     Indication: Melaena
     Dosage: UNK

REACTIONS (2)
  - Drug ineffective for unapproved indication [Unknown]
  - Product prescribing issue [Unknown]
